FAERS Safety Report 10473770 (Version 4)
Quarter: 2021Q4

REPORT INFORMATION
  Report Type: Spontaneous
  Country: DE (occurrence: DE)
  Receive Date: 20140924
  Receipt Date: 20211111
  Transmission Date: 20220303
  Serious: Yes (Congenital Anomaly, Other)
  Sender: FDA-Public Use
  Company Number: GXKR2014DE003594

PATIENT
  Sex: Male
  Weight: 2.4 kg

DRUGS (2)
  1. LEVETIRACETAM [Suspect]
     Active Substance: LEVETIRACETAM
     Indication: Foetal exposure during pregnancy
     Dosage: FATHER RECEIVED: 2000 MG
     Route: 064
     Dates: start: 20130716, end: 20131014
  2. MISOPROSTOL [Concomitant]
     Active Substance: MISOPROSTOL
     Indication: Foetal exposure during pregnancy
     Dosage: UNK
     Route: 064
     Dates: start: 20140228, end: 20140228

REACTIONS (3)
  - Congenital hydrocephalus [Not Recovered/Not Resolved]
  - Paternal exposure before pregnancy [Unknown]
  - Stillbirth [Unknown]

NARRATIVE: CASE EVENT DATE: 20130716
